FAERS Safety Report 7648761-2 (Version None)
Quarter: 2011Q3

REPORT INFORMATION
  Report Type: 
  Country: None (occurrence: None)
  Receive Date: 20110801
  Receipt Date: 20110726
  Transmission Date: 20111222
  Serious: Yes (Death)
  Sender: FDA-Public Use
  Company Number: PHHY2011BR30088

PATIENT
  Sex: Male

DRUGS (3)
  1. INSULIN [Concomitant]
     Indication: DIABETES MELLITUS
  2. LORAZEPAM [Concomitant]
     Indication: ANXIETY
     Dosage: 2 MG LORAZEPAM, DAILY
     Route: 048
  3. EXFORGE HCT [Suspect]
     Indication: HYPERTENSION
     Dosage: 2 TABLETS OF 160 MG VALSARTAN, 12.5 MG HYDROCHLOROTHIAZIDE AND 5 MG AMLODIPINE
     Route: 048

REACTIONS (1)
  - ROAD TRAFFIC ACCIDENT [None]
